FAERS Safety Report 4932093-7 (Version None)
Quarter: 2006Q1

REPORT INFORMATION
  Report Type: 
  Country: None (occurrence: None)
  Receive Date: 20060303
  Receipt Date: 20060220
  Transmission Date: 20060701
  Serious: Yes (Hospitalization, Disabling)
  Sender: FDA-Public Use
  Company Number: PHBS2006CO02896

PATIENT
  Age: 52 Year
  Sex: Female

DRUGS (4)
  1. ZOMETA [Suspect]
     Indication: BREAST CANCER
     Dosage: UNK, QMO
     Route: 042
     Dates: start: 20050201
  2. CALCIUM GLUCONATE [Concomitant]
     Indication: PAIN
  3. CALCITRIOL [Concomitant]
     Indication: PAIN
  4. OXYCODONE [Concomitant]
     Indication: PAIN

REACTIONS (2)
  - FEMUR FRACTURE [None]
  - MALIGNANT NEOPLASM PROGRESSION [None]
